FAERS Safety Report 6710193-9 (Version None)
Quarter: 2010Q2

REPORT INFORMATION
  Report Type: 
  Country: None (occurrence: None)
  Receive Date: 20100504
  Receipt Date: 20100429
  Transmission Date: 20101027
  Serious: Yes (Other)
  Sender: FDA-Public Use
  Company Number: AU-BRISTOL-MYERS SQUIBB COMPANY-15087588

PATIENT

DRUGS (1)
  1. ABILIFY [Suspect]

REACTIONS (2)
  - AKATHISIA [None]
  - PSYCHOTIC DISORDER [None]
